FAERS Safety Report 5103399-6 (Version None)
Quarter: 2006Q3

REPORT INFORMATION
  Report Type: 
  Country: None (occurrence: None)
  Receive Date: 20060731
  Receipt Date: 20060410
  Transmission Date: 20061208
  Serious: Yes (Hospitalization)
  Sender: FDA-Public Use
  Company Number: US-JNJFOC-20060306262

PATIENT
  Age: 23 Year
  Sex: Female

DRUGS (4)
  1. RISPERDAL [Suspect]
     Indication: BIPOLAR DISORDER
     Dosage: 8 PILLS (UNSPECIFIED DOSAGE)
     Dates: start: 20060218
  2. MOTRIN [Suspect]
     Indication: DRUG USE FOR UNKNOWN INDICATION
     Dates: start: 20060218
  3. PROZAC [Suspect]
     Indication: DRUG USE FOR UNKNOWN INDICATION
  4. GEODONE()ZIPRASIDONE HYDROCHLORIDE [Concomitant]

REACTIONS (6)
  - DRUG EXPOSURE DURING PREGNANCY [None]
  - DYSKINESIA [None]
  - EXTRAPYRAMIDAL DISORDER [None]
  - GRIMACING [None]
  - INTENTIONAL OVERDOSE [None]
  - PYREXIA [None]
